FAERS Safety Report 4837568-7 (Version None)
Quarter: 2005Q4

REPORT INFORMATION
  Report Type: 
  Country: None (occurrence: None)
  Receive Date: 20051024
  Receipt Date: 20050808
  Transmission Date: 20060501
  Serious: Yes (Other)
  Sender: FDA-Public Use
  Company Number: 2005113518

PATIENT
  Age: 29 Year
  Sex: Female
  Weight: 50.8029 kg

DRUGS (3)
  1. RELPAX [Suspect]
     Indication: MIGRAINE
     Dosage: 40 MG (20 MG, 2 IN 1 D),
     Dates: start: 20050101
  2. LITHIUM CARBONATE [Concomitant]
  3. RISPERDAL [Concomitant]

REACTIONS (1)
  - MIGRAINE [None]
